FAERS Safety Report 24322789 (Version 1)
Quarter: 2024Q3

REPORT INFORMATION
  Report Type: Spontaneous
  Country: US (occurrence: US)
  Receive Date: 20240916
  Receipt Date: 20240916
  Transmission Date: 20241017
  Serious: Yes (Other)
  Sender: BAYER
  Company Number: US-BAYER-2024A131212

PATIENT
  Age: 79 Year
  Sex: Male

DRUGS (2)
  1. ASPIRIN [Suspect]
     Active Substance: ASPIRIN
     Dosage: UNK
  2. APIXABAN [Suspect]
     Active Substance: APIXABAN

REACTIONS (5)
  - Upper gastrointestinal haemorrhage [None]
  - Iron deficiency anaemia [None]
  - Anaemia [None]
  - Hypotension [None]
  - Labelled drug-drug interaction medication error [None]
